FAERS Safety Report 9495913 (Version 1)
Quarter: 2013Q3

REPORT INFORMATION
  Report Type: Report from Study
  Country: CA (occurrence: CA)
  Receive Date: 20130903
  Receipt Date: 20130903
  Transmission Date: 20140515
  Serious: No
  Sender: FDA-Public Use
  Company Number: CA-US-EMD SERONO, INC.-7234280

PATIENT
  Age: 39 Year
  Sex: Female

DRUGS (4)
  1. REBIF [Suspect]
     Indication: RELAPSING-REMITTING MULTIPLE SCLEROSIS
     Route: 058
     Dates: start: 20120803
  2. REBIF [Suspect]
     Route: 058
  3. REBIF [Suspect]
     Route: 058
     Dates: start: 20130717
  4. REBIF [Suspect]
     Route: 058
     Dates: start: 20130819

REACTIONS (4)
  - Hypoaesthesia [Unknown]
  - Vertigo [Unknown]
  - Migraine [Unknown]
  - Influenza like illness [Unknown]
